FAERS Safety Report 4900870-4 (Version None)
Quarter: 2006Q1

REPORT INFORMATION
  Report Type: 
  Country: None (occurrence: None)
  Receive Date: 20060201
  Receipt Date: 20060124
  Transmission Date: 20060701
  Serious: Yes (Other)
  Sender: FDA-Public Use
  Company Number: 221428

PATIENT
  Age: 57 Year
  Sex: Female

DRUGS (3)
  1. MABTHER                     (RITUXIMAB) [Suspect]
     Indication: NON-HODGKIN'S LYMPHOMA
     Dosage: 250 MG/M2, SINGLE, INTRAVENOUS
     Route: 042
     Dates: start: 20041214, end: 20051224
  2. Y-90 ZEVALIN(IBRITUMOMAB TIUXETAN, YITRIUM-90) [Suspect]
     Indication: NON-HODGKIN'S LYMPHOMA
     Dosage: 3.5 MCI, SINGLE, INTRAVENOUS
     Route: 042
     Dates: start: 20041214, end: 20041214
  3. IN-111 ZEVALIN(IBRITUMOMAB TIUXETAN, INDIUM-111) [Suspect]
     Indication: NON-HODGKIN'S LYMPHOMA
     Dosage: 0.4 MCI, SINGLE, INTRAVENOUS
     Route: 042
     Dates: start: 20041224, end: 20041224

REACTIONS (1)
  - NEUTROPHIL COUNT DECREASED [None]
